FAERS Safety Report 8875407 (Version 3)
Quarter: 2012Q4

REPORT INFORMATION
  Report Type: Report from Study
  Country: US (occurrence: US)
  Receive Date: 20121023
  Receipt Date: 20121126
  Transmission Date: 20130627
  Serious: No
  Sender: FDA-Public Use
  Company Number: US-VERTEX PHARMACEUTICAL INC.-2012-023088

PATIENT
  Age: 56 Year
  Sex: Female
  Weight: 54 kg

DRUGS (6)
  1. VX-950 (TELAPREVIR) [Suspect]
     Indication: HEPATITIS C
     Dosage: 750 mg, tid
     Route: 048
  2. RIBAPAK PAK [Concomitant]
     Indication: HEPATITIS C
     Dosage: 1200 mg, qd
  3. PEGASYS [Concomitant]
     Indication: HEPATITIS C
     Dosage: 180mcg/M
  4. ADDERALL [Concomitant]
     Dosage: 10 mg, UNK
  5. GEODON                             /01487002/ [Concomitant]
     Dosage: 20 mg, UNK
  6. SAPHRIS SUB [Concomitant]
     Dosage: 5 mg, UNK

REACTIONS (11)
  - Cardiac flutter [Unknown]
  - Depression [Unknown]
  - Dizziness [Unknown]
  - Anxiety [Unknown]
  - Nervousness [Unknown]
  - Influenza like illness [Unknown]
  - Decreased appetite [Unknown]
  - Dry mouth [Unknown]
  - Asthenia [Unknown]
  - Syncope [Unknown]
  - Rash [Unknown]
